FAERS Safety Report 7864306-6 (Version None)
Quarter: 2011Q4

REPORT INFORMATION
  Report Type: 
  Country: None (occurrence: None)
  Receive Date: 20111028
  Receipt Date: 20110714
  Transmission Date: 20120403
  Serious: No
  Sender: FDA-Public Use
  Company Number: US-GLAXOSMITHKLINE-A0936829A

PATIENT
  Age: 46 Year
  Sex: Male

DRUGS (15)
  1. CYMBALTA [Concomitant]
  2. PRILOSEC [Concomitant]
  3. VITAMIN B-12 [Concomitant]
  4. HYDROXYZINE [Concomitant]
  5. MELOXICAM [Concomitant]
  6. METHOCARBAMOL [Concomitant]
  7. CALCIUM CARBONATE [Concomitant]
  8. ALBUTEROL [Concomitant]
  9. NEURONTIN [Concomitant]
  10. RESPERIDOL [Concomitant]
  11. VITAMIN D [Concomitant]
  12. XOPENEX [Concomitant]
  13. SEREVENT [Suspect]
     Indication: ASTHMA
     Dosage: 1PUFF TWICE PER DAY
     Route: 055
  14. SINGULAIR [Concomitant]
  15. NASONEX [Concomitant]

REACTIONS (3)
  - PRODUCT QUALITY ISSUE [None]
  - DRUG INEFFECTIVE [None]
  - DYSPNOEA [None]
